FAERS Safety Report 10705180 (Version 2)
Quarter: 2015Q1

REPORT INFORMATION
  Report Type: Spontaneous
  Country: US (occurrence: US)
  Receive Date: 20150112
  Receipt Date: 20150303
  Transmission Date: 20150721
  Serious: No
  Sender: FDA-Public Use
  Company Number: US-PFIZER INC-2015011016

PATIENT
  Age: 44 Year
  Sex: Female

DRUGS (1)
  1. GABAPENTIN. [Suspect]
     Active Substance: GABAPENTIN
     Indication: NEURALGIA
     Dosage: 2000 MG, DAILY
     Dates: start: 201311

REACTIONS (2)
  - Drug ineffective for unapproved indication [Unknown]
  - Abdominal discomfort [Unknown]
